FAERS Safety Report 13743034 (Version 6)
Quarter: 2019Q1

REPORT INFORMATION
  Report Type: Report from Study
  Country: JP (occurrence: JP)
  Receive Date: 20170711
  Receipt Date: 20190322
  Transmission Date: 20190417
  Serious: Yes (Other)
  Sender: FDA-Public Use
  Company Number: JP-INCYTE CORPORATION-2017IN005448

PATIENT

DRUGS (18)
  1. JAKAVI [Suspect]
     Active Substance: RUXOLITINIB
     Dosage: 5 MG, BID
     Route: 048
     Dates: start: 20170515, end: 20170607
  2. REBAMIPIDE [Suspect]
     Active Substance: REBAMIPIDE
     Indication: PRODUCT USED FOR UNKNOWN INDICATION
     Dosage: 300 MG, UNK
     Route: 048
     Dates: start: 20161130, end: 20170515
  3. RED BLOOD CELLS-LEUKOCYTES REDUCED [Concomitant]
     Active Substance: HUMAN RED BLOOD CELL
     Indication: ANAEMIA
     Dosage: 2 DF, UNK
     Route: 065
     Dates: start: 20170201
  4. JAKAVI [Suspect]
     Active Substance: RUXOLITINIB
     Dosage: 15 MG (IN TWO DIVIDED DOSES), BID
     Route: 048
     Dates: end: 20170315
  5. JAKAVI [Suspect]
     Active Substance: RUXOLITINIB
     Dosage: 5 MG, BID
     Route: 048
     Dates: start: 20170315, end: 20170405
  6. JAKAVI [Suspect]
     Active Substance: RUXOLITINIB
     Dosage: 5 MG, BID
     Route: 048
     Dates: start: 20170621, end: 20170719
  7. JAKAVI [Suspect]
     Active Substance: RUXOLITINIB
     Dosage: 15 MG (IN TWO DIVIDED DOSES), BID
     Route: 048
     Dates: start: 20160810
  8. JAKAVI [Suspect]
     Active Substance: RUXOLITINIB
     Dosage: 15 MG (IN TWO DIVIDED DOSES), BID
     Route: 048
     Dates: start: 20171011, end: 20171025
  9. JAKAVI [Suspect]
     Active Substance: RUXOLITINIB
     Indication: MYELOFIBROSIS
     Dosage: 5 MG, BID
     Route: 048
     Dates: start: 20160603
  10. RED BLOOD CELLS-LEUKOCYTES REDUCED [Concomitant]
     Active Substance: HUMAN RED BLOOD CELL
     Indication: MYELOFIBROSIS
     Dosage: 400 ML, UNK
     Route: 065
     Dates: start: 20170614, end: 20171122
  11. JAKAVI [Suspect]
     Active Substance: RUXOLITINIB
     Dosage: 15 MG (IN TWO DIVIDED DOSES), BID
     Route: 048
     Dates: start: 20170405, end: 20170515
  12. JAKAVI [Suspect]
     Active Substance: RUXOLITINIB
     Dosage: 15 MG (IN TWO DIVIDED DOSES), BID
     Route: 048
     Dates: start: 20170607, end: 20170621
  13. HYDREA [Suspect]
     Active Substance: HYDROXYUREA
     Indication: MYELOFIBROSIS
     Dosage: 1000 MG, UNK
     Route: 048
     Dates: end: 20160608
  14. JAKAVI [Suspect]
     Active Substance: RUXOLITINIB
     Dosage: 12.5 MG (IN TWO DIVIDED DOSES), BID
     Route: 048
     Dates: start: 20171025
  15. JAKAVI [Suspect]
     Active Substance: RUXOLITINIB
     Dosage: 10 MG IN THE MORNING, 5 MG IN THE EVENING, BID
     Route: 048
  16. JAKAVI [Suspect]
     Active Substance: RUXOLITINIB
     Dosage: ALTERNATELY ADMINISTRATION OF 10MG,15MG (IN TWO DIVIDED DOSES), BID
     Route: 048
     Dates: start: 20170719, end: 20171011
  17. HYDREA [Suspect]
     Active Substance: HYDROXYUREA
     Dosage: 750 MG, UNK
     Route: 048
     Dates: start: 20160713
  18. HYDREA [Suspect]
     Active Substance: HYDROXYUREA
     Dosage: 500 MG, UNK
     Route: 048
     Dates: start: 20170315

REACTIONS (19)
  - Blood pressure increased [Unknown]
  - Platelet count decreased [Recovered/Resolved]
  - Hyperuricaemia [Recovered/Resolved]
  - Platelet count decreased [Recovered/Resolved]
  - Enteritis infectious [Recovered/Resolved]
  - Cardiac failure congestive [Recovered/Resolved]
  - Myelofibrosis [Recovering/Resolving]
  - Weight increased [Unknown]
  - Anaemia [Recovered/Resolved]
  - Bone marrow failure [Recovered/Resolved]
  - Diarrhoea [Recovered/Resolved]
  - Haemoglobin decreased [Recovered/Resolved]
  - Dyspnoea [Unknown]
  - Blood uric acid increased [Recovering/Resolving]
  - Cardiac failure congestive [Recovered/Resolved]
  - Blood lactate dehydrogenase increased [Recovered/Resolved]
  - N-terminal prohormone brain natriuretic peptide increased [Recovered/Resolved]
  - Myelofibrosis [Recovered/Resolved]
  - Myelofibrosis [Recovered/Resolved]

NARRATIVE: CASE EVENT DATE: 20160615
